FAERS Safety Report 7950788-8 (Version None)
Quarter: 2011Q4

REPORT INFORMATION
  Report Type: 
  Country: None (occurrence: None)
  Receive Date: 20111201
  Receipt Date: 20111129
  Transmission Date: 20120403
  Serious: No
  Sender: FDA-Public Use
  Company Number: US-PFIZER INC-2011292130

PATIENT
  Sex: Female
  Weight: 58.9 kg

DRUGS (5)
  1. ALSUMA [Suspect]
     Indication: MIGRAINE
     Dosage: 6MG/ 0.5ML
     Dates: start: 20111129
  2. COMPAZINE [Concomitant]
     Indication: NAUSEA
     Dosage: 10 MG, EVERY 6 HOURS
  3. FIORICET [Concomitant]
     Indication: MIGRAINE
     Dosage: 50/40/325, MG
  4. IMITREX [Concomitant]
     Indication: MIGRAINE
     Dosage: 100 MG, AS NEEDED
  5. VICODIN [Concomitant]
     Indication: MIGRAINE
     Dosage: 500 MG, 2X/DAY

REACTIONS (1)
  - MIGRAINE [None]
